FAERS Safety Report 4782277-6 (Version None)
Quarter: 2005Q3

REPORT INFORMATION
  Report Type: 
  Country: None (occurrence: None)
  Receive Date: 20050929
  Receipt Date: 20050907
  Transmission Date: 20060218
  Serious: Yes (Hospitalization)
  Sender: FDA-Public Use
  Company Number: DE-BOEHRINGER INGELHEIM PHARMACEUTICALS, INC.-2005-DE-03667DE

PATIENT
  Sex: Male
  Weight: 72 kg

DRUGS (2)
  1. SPIRIVA [Suspect]
     Indication: CHRONIC OBSTRUCTIVE PULMONARY DISEASE
     Route: 055
     Dates: start: 20020208
  2. METFORMIN [Concomitant]
     Indication: DIABETES MELLITUS NON-INSULIN-DEPENDENT

REACTIONS (9)
  - CHEST PAIN [None]
  - DIABETES MELLITUS [None]
  - DIABETIC NEPHROPATHY [None]
  - DYSPNOEA [None]
  - DYSPNOEA EXERTIONAL [None]
  - MICROALBUMINURIA [None]
  - PERIPHERAL OCCLUSIVE DISEASE [None]
  - PNEUMONIA [None]
  - PROSTATIC SPECIFIC ANTIGEN INCREASED [None]
